FAERS Safety Report 9252698 (Version 1)
Quarter: 2013Q2

REPORT INFORMATION
  Report Type: Spontaneous
  Country: IT (occurrence: IT)
  Receive Date: 20130424
  Receipt Date: 20130424
  Transmission Date: 20140414
  Serious: Yes (Life-Threatening)
  Sender: FDA-Public Use
  Company Number: IT-GLAXOSMITHKLINE-B0886549A

PATIENT
  Age: 83 Year
  Sex: Female

DRUGS (7)
  1. LAMICTAL [Suspect]
     Indication: EPILEPSY
     Dosage: 12.5MG PER DAY
     Route: 048
     Dates: start: 20100816, end: 20111125
  2. FUROSEMIDE [Concomitant]
  3. NITROCOR [Concomitant]
  4. SERENASE [Concomitant]
  5. CATAPRESAN [Concomitant]
  6. TRIATEC [Concomitant]
  7. COUMADIN [Concomitant]

REACTIONS (1)
  - Hyponatraemia [Recovered/Resolved]
